FAERS Safety Report 7438085-0 (Version None)
Quarter: 2011Q2

REPORT INFORMATION
  Report Type: 
  Country: None (occurrence: None)
  Receive Date: 20110421
  Receipt Date: 20110421
  Transmission Date: 20111010
  Serious: Yes (Other)
  Sender: FDA-Public Use
  Company Number: None

PATIENT
  Age: 42 Year
  Sex: Female
  Weight: 58.9676 kg

DRUGS (1)
  1. LEVAQUIN [Suspect]
     Dosage: 500 MG/DAY 10 DAYS PO
     Route: 048
     Dates: start: 20100916, end: 20100925

REACTIONS (1)
  - ROTATOR CUFF SYNDROME [None]
